FAERS Safety Report 9287932 (Version 2)
Quarter: 2013Q4

REPORT INFORMATION
  Report Type: Spontaneous
  Country: US (occurrence: US)
  Receive Date: 20130514
  Receipt Date: 20131227
  Transmission Date: 20140711
  Serious: Yes (Hospitalization)
  Sender: FDA-Public Use
  Company Number: US-BAYER-2013-058406

PATIENT
  Age: 29 Year
  Sex: Female
  Weight: 62.59 kg

DRUGS (11)
  1. YAZ [Suspect]
     Dosage: UNK
     Dates: start: 2006, end: 2008
  2. YASMIN [Suspect]
     Dosage: UNK
     Dates: start: 2006, end: 2008
  3. OCELLA [Suspect]
     Dosage: UNK
     Dates: start: 2006, end: 2008
  4. PROTONIX [Concomitant]
     Indication: GASTROOESOPHAGEAL REFLUX DISEASE
     Dosage: UNK
     Dates: end: 2011
  5. PROTONIX [Concomitant]
     Indication: NAUSEA
  6. ZYRTEC [Concomitant]
  7. CHLORASEPTIC [Concomitant]
  8. NEXIUM [Concomitant]
     Dosage: 40 MG, UNK
  9. FLAGYL [Concomitant]
     Dosage: 500 MG, BID
  10. REGLAN [Concomitant]
  11. ZYRTEC-D [Concomitant]

REACTIONS (10)
  - Pulmonary embolism [None]
  - Pain [None]
  - Injury [None]
  - Emotional distress [None]
  - Abdominal pain [None]
  - General physical health deterioration [None]
  - Anxiety [None]
  - Pain [None]
  - Haemoptysis [None]
  - Bronchitis [None]
